FAERS Safety Report 5479014-9 (Version None)
Quarter: 2007Q4

REPORT INFORMATION
  Report Type: 
  Country: None (occurrence: None)
  Receive Date: 20071006
  Receipt Date: 20070925
  Transmission Date: 20080405
  Serious: Yes (Hospitalization)
  Sender: FDA-Public Use
  Company Number: JP-PFIZER INC-2007080425

PATIENT
  Age: 73 Year
  Sex: Male

DRUGS (1)
  1. VIAGRA [Suspect]
     Dosage: DAILY DOSE:50MG
     Route: 048

REACTIONS (1)
  - RETINAL DETACHMENT [None]
